FAERS Safety Report 16667243 (Version 1)
Quarter: 2019Q3

REPORT INFORMATION
  Report Type: Report from Study
  Country: US (occurrence: US)
  Receive Date: 20190805
  Receipt Date: 20190805
  Transmission Date: 20191004
  Serious: Yes (Hospitalization, Other)
  Sender: FDA-Public Use
  Company Number: US-B.I. PHARMACEUTICALS,INC./RIDGEFIELD-2016-BI-29717BI

PATIENT
  Sex: Female

DRUGS (4)
  1. GILOTRIF [Suspect]
     Active Substance: AFATINIB
     Indication: NON-SMALL CELL LUNG CANCER
     Route: 048
     Dates: start: 20160415
  2. MORPHINE [Suspect]
     Active Substance: MORPHINE
     Indication: PAIN
     Route: 065
  3. GILOTRIF [Suspect]
     Active Substance: AFATINIB
     Route: 048
  4. GILOTRIF [Suspect]
     Active Substance: AFATINIB
     Route: 048
     Dates: start: 20180315

REACTIONS (12)
  - Vomiting [Not Recovered/Not Resolved]
  - Malignant neoplasm progression [Not Recovered/Not Resolved]
  - Nail disorder [Not Recovered/Not Resolved]
  - Nausea [Not Recovered/Not Resolved]
  - Malaise [Unknown]
  - Intestinal obstruction [Unknown]
  - Chest pain [Unknown]
  - Rash [Not Recovered/Not Resolved]
  - Dermatitis acneiform [Unknown]
  - Pneumonia [Unknown]
  - Productive cough [Unknown]
  - Somnolence [Unknown]
